FAERS Safety Report 10267307 (Version 1)
Quarter: 2014Q2

REPORT INFORMATION
  Report Type: Report from Study
  Country: CA (occurrence: CA)
  Receive Date: 20140630
  Receipt Date: 20140630
  Transmission Date: 20141212
  Serious: Yes (Other)
  Sender: FDA-Public Use
  Company Number: CA-JNJFOC-20140613379

PATIENT
  Sex: Male
  Weight: 85.5 kg

DRUGS (1)
  1. REMICADE [Suspect]
     Indication: CROHN^S DISEASE
     Route: 042
     Dates: start: 20130122, end: 20140605

REACTIONS (3)
  - Purulence [Unknown]
  - Crohn^s disease [Unknown]
  - Drug ineffective [Unknown]
